FAERS Safety Report 21915874 (Version 1)
Quarter: 2023Q1

REPORT INFORMATION
  Report Type: Spontaneous
  Country: US (occurrence: None)
  Receive Date: 20230125
  Receipt Date: 20230125
  Transmission Date: 20230418
  Serious: Yes (Other)
  Sender: FDA-Public Use
  Company Number: None

PATIENT
  Age: 76 Year
  Sex: Female
  Weight: 52.2 kg

DRUGS (1)
  1. FERAHEME [Suspect]
     Active Substance: FERUMOXYTOL NON-STOICHIOMETRIC MAGNETITE
     Indication: Anaemia
     Dosage: OTHER FREQUENCY : ONCE;?
     Route: 040
     Dates: start: 20220812, end: 20220812

REACTIONS (6)
  - Infusion related reaction [None]
  - Back pain [None]
  - Muscle spasms [None]
  - Pain [None]
  - Arthralgia [None]
  - Coccydynia [None]

NARRATIVE: CASE EVENT DATE: 20220812
